FAERS Safety Report 9407366 (Version 1)
Quarter: 2013Q3

REPORT INFORMATION
  Report Type: Spontaneous
  Country: GB (occurrence: GB)
  Receive Date: 20130718
  Receipt Date: 20130718
  Transmission Date: 20140515
  Serious: Yes (Hospitalization, Other)
  Sender: FDA-Public Use
  Company Number: GB-PFIZER INC-2013205729

PATIENT
  Age: 52 Year
  Sex: Male
  Weight: 107.95 kg

DRUGS (9)
  1. SULFASALAZINE [Suspect]
     Dosage: UNK
     Dates: start: 20130603
  2. ACETYLSALICYLIC ACID [Concomitant]
     Dosage: UNK
     Dates: start: 20130212, end: 20130605
  3. ATORVASTATIN [Concomitant]
     Dosage: UNK
     Dates: start: 20130212, end: 20130605
  4. BISOPROLOL [Concomitant]
     Dosage: UNK
     Dates: start: 20130212, end: 20130409
  5. LOSARTAN [Concomitant]
     Dosage: UNK
     Dates: start: 20130212, end: 20130605
  6. LANSOPRAZOLE [Concomitant]
     Dosage: UNK
     Dates: start: 20130319, end: 20130624
  7. NAPROXEN [Concomitant]
     Dosage: UNK
     Dates: start: 20130404, end: 20130527
  8. PREDNISOLONE [Concomitant]
     Dosage: UNK
     Dates: start: 20130404, end: 20130418
  9. GLYCERYL TRINITRATE [Concomitant]
     Dosage: UNK
     Dates: start: 20130410

REACTIONS (2)
  - Neutropenic sepsis [Recovering/Resolving]
  - Neutropenia [Recovering/Resolving]
